FAERS Safety Report 8297735-X (Version None)
Quarter: 2012Q2

REPORT INFORMATION
  Report Type: 
  Country: None (occurrence: None)
  Receive Date: 20120417
  Receipt Date: 20120410
  Transmission Date: 20120825
  Serious: Yes (Hospitalization)
  Sender: FDA-Public Use
  Company Number: 2012SP019180

PATIENT
  Age: 29 Year
  Sex: Female

DRUGS (1)
  1. ETONOGESTREL (IMPLANT TYPE UNKNOWN) (ETONOGESTREL /01502301/) [Suspect]
     Indication: CONTRACEPTION
     Dates: start: 20120101, end: 20120201

REACTIONS (1)
  - HEPATITIS CHOLESTATIC [None]
